FAERS Safety Report 15658493 (Version 3)
Quarter: 2019Q1

REPORT INFORMATION
  Report Type: Report from Study
  Country: US (occurrence: US)
  Receive Date: 20181126
  Receipt Date: 20190110
  Transmission Date: 20190417
  Serious: Yes (Death, Hospitalization, Disabling)
  Sender: FDA-Public Use
  Company Number: US-ACTELION-A-US2018-180437

PATIENT
  Age: 91 Year
  Sex: Female

DRUGS (2)
  1. TRACLEER [Suspect]
     Active Substance: BOSENTAN
     Dosage: UNK
     Route: 048
  2. TRACLEER [Suspect]
     Active Substance: BOSENTAN
     Indication: PULMONARY ARTERIAL HYPERTENSION
     Dosage: 125 MG, BID
     Route: 048

REACTIONS (6)
  - Death [Fatal]
  - Hospitalisation [Unknown]
  - Cough [Unknown]
  - Pneumonia [Recovering/Resolving]
  - Bronchitis [Unknown]
  - Fatigue [Unknown]

NARRATIVE: CASE EVENT DATE: 20180926
